FAERS Safety Report 7401302 (Version 5)
Quarter: 2015Q4

REPORT INFORMATION
  Report Type: Spontaneous
  Country: US (occurrence: US)
  Receive Date: 20100527
  Receipt Date: 20151218
  Transmission Date: 20160305
  Serious: Yes (Hospitalization, Other)
  Sender: FDA-Public Use
  Company Number: US-BAYER-201023171NA

PATIENT
  Age: 44 Year
  Sex: Female
  Weight: 104 kg

DRUGS (4)
  1. YASMIN [Suspect]
     Active Substance: DROSPIRENONE\ETHINYL ESTRADIOL
     Indication: CONTRACEPTION
     Dosage: UNK UNK, UNK
     Route: 048
     Dates: start: 200203, end: 20040307
  2. FLONASE [Concomitant]
     Active Substance: FLUTICASONE PROPIONATE
  3. SUDAFED [Concomitant]
     Active Substance: PSEUDOEPHEDRINE HYDROCHLORIDE
  4. IRON [Concomitant]
     Active Substance: IRON

REACTIONS (7)
  - Gallbladder disorder [Unknown]
  - Hypoaesthesia oral [Unknown]
  - Cerebrovascular accident [Unknown]
  - Deep vein thrombosis [Unknown]
  - Musculoskeletal disorder [Unknown]
  - Pulmonary embolism [Unknown]
  - Myocardial infarction [Recovered/Resolved]

NARRATIVE: CASE EVENT DATE: 20040307
